FAERS Safety Report 11201013 (Version 1)
Quarter: 2015Q2

REPORT INFORMATION
  Report Type: Spontaneous
  Country: CN (occurrence: CN)
  Receive Date: 20150618
  Receipt Date: 20150618
  Transmission Date: 20150821
  Serious: Yes (Death, Other)
  Sender: FDA-Public Use
  Company Number: CN-MYLANLABS-2015M1019973

PATIENT

DRUGS (16)
  1. THALIDOMIDE [Suspect]
     Active Substance: THALIDOMIDE
     Indication: PLASMA CELL MYELOMA
     Dosage: 100 MG/DAY, EVERY DAY
     Route: 065
  2. VINDESINE [Suspect]
     Active Substance: VINDESINE
     Indication: ACUTE MYELOID LEUKAEMIA
     Dosage: 4MG; DAY 1
     Route: 065
     Dates: start: 20131026
  3. DEXAMETHASONE. [Concomitant]
     Active Substance: DEXAMETHASONE
     Indication: PLASMA CELL MYELOMA
     Dosage: 20 MG; ON DAYS 1, 4, 8 AND 11
     Route: 065
  4. CYCLOPHOSPHAMIDE. [Concomitant]
     Active Substance: CYCLOPHOSPHAMIDE
     Indication: PLASMA CELL MYELOMA
     Dosage: 500 MG, FROM DAYS 1-4
     Route: 065
  5. THALIDOMIDE [Suspect]
     Active Substance: THALIDOMIDE
     Dosage: 100 MG/DAY
     Route: 048
  6. PREDNISONE. [Suspect]
     Active Substance: PREDNISONE
     Indication: ACUTE MYELOID LEUKAEMIA
     Dosage: 50 MG; EVERY OTHER DAY; FROM DAYS 1-7
     Route: 065
     Dates: start: 20131026
  7. ACLARUBICIN [Concomitant]
     Active Substance: ACLARUBICIN
     Indication: ACUTE MYELOID LEUKAEMIA
     Dosage: 10 MG, DAYS 1-8
     Route: 065
     Dates: start: 20130429
  8. OMACETAXINE MEPESUCCINATE [Concomitant]
     Active Substance: OMACETAXINE MEPESUCCINATE
     Indication: ACUTE MYELOID LEUKAEMIA
     Dosage: 3MG, FROM DAYS 1-7
     Route: 065
  9. BORTEZOMIB [Concomitant]
     Active Substance: BORTEZOMIB
     Indication: PLASMA CELL MYELOMA
     Dosage: 1.3 MG/M2; ON DAYS 1, 4, 8 AND 11
     Route: 065
  10. ETOPOSIDE. [Concomitant]
     Active Substance: ETOPOSIDE
     Indication: ACUTE MYELOID LEUKAEMIA
     Dosage: 100MG, FROM DAYS 1-7
     Route: 065
  11. MITOXANTRONE [Concomitant]
     Active Substance: MITOXANTRONE HYDROCHLORIDE
     Indication: ACUTE MYELOID LEUKAEMIA
     Dosage: 4 MG, DAYS 1-3
     Route: 065
  12. IFOSFAMIDE. [Suspect]
     Active Substance: IFOSFAMIDE
     Indication: ACUTE MYELOID LEUKAEMIA
     Dosage: 0.5G FROM DAYS 1-4
     Route: 065
     Dates: start: 20131026
  13. CYTARABINE. [Concomitant]
     Active Substance: CYTARABINE
     Indication: ACUTE MYELOID LEUKAEMIA
     Dosage: FROM DAYS 1-14
     Route: 065
     Dates: start: 20130429
  14. CYTARABINE. [Concomitant]
     Active Substance: CYTARABINE
     Dosage: 100 MG, DAYS 1-7
     Route: 065
     Dates: start: 201307
  15. CYTARABINE. [Suspect]
     Active Substance: CYTARABINE
     Indication: ACUTE MYELOID LEUKAEMIA
     Dosage: 100 MG; EVERY OTHER DAY; FROM DAYS 1-7
     Route: 065
     Dates: start: 20131026
  16. DEXAMETHASONE. [Concomitant]
     Active Substance: DEXAMETHASONE
     Dosage: 20MG, FROM DAYS 1-4
     Route: 065

REACTIONS (7)
  - Pancytopenia [Unknown]
  - Agranulocytosis [Unknown]
  - Respiratory failure [Fatal]
  - Pneumonia [Fatal]
  - Tuberculosis [Fatal]
  - Pleural effusion [Fatal]
  - Anaemia [Unknown]
